FAERS Safety Report 23628433 (Version 1)
Quarter: 2024Q1

REPORT INFORMATION
  Report Type: Spontaneous
  Country: SI (occurrence: SI)
  Receive Date: 20240313
  Receipt Date: 20240313
  Transmission Date: 20240410
  Serious: Yes (Other)
  Sender: FDA-Public Use
  Company Number: None

PATIENT
  Age: 23 Year
  Sex: Male

DRUGS (6)
  1. VINCRISTINE [Suspect]
     Active Substance: VINCRISTINE
     Indication: Diffuse large B-cell lymphoma
     Dosage: STRENGTH: 1 MG/ML?DOSE: ACCORDING TO THE R-CHOP SCHEME (RITUXIMAB, CYCLOPHOSPHAMIDE, DOXORUBICIN,...
     Route: 042
     Dates: start: 20240115, end: 20240115
  2. CYCLOPHOSPHAMIDE [Suspect]
     Active Substance: CYCLOPHOSPHAMIDE
     Indication: Diffuse large B-cell lymphoma
     Dosage: DOSE: ACCORDING TO THE R-CHOP SCHEME (RITUXIMAB, CYCLOPHOSPHAMIDE, DOXORUBICIN, VINCRISTINE, METH...
     Route: 042
     Dates: start: 20240115, end: 20240115
  3. MABTHERA [Suspect]
     Active Substance: RITUXIMAB
     Indication: Diffuse large B-cell lymphoma
     Dosage: DOSE: ACCORDING TO THE R-CHOP SCHEME (RITUXIMAB, CYCLOPHOSPHAMIDE, DOXORUBICIN, VINCRISTINE, METH...
     Route: 042
     Dates: start: 20240115, end: 20240115
  4. NEULASTA [Concomitant]
     Active Substance: PEGFILGRASTIM
     Indication: Prophylaxis
     Dosage: TIME INTERVAL: TOTAL: 1X6MG,  6 MG SOLUTION FOR INJECTION
     Route: 058
     Dates: start: 20240117, end: 20240117
  5. DOXORUBICIN HYDROCHLORIDE [Suspect]
     Active Substance: DOXORUBICIN HYDROCHLORIDE
     Indication: Diffuse large B-cell lymphoma
     Dosage: STRENGHT: 2 MG/ML ?DOSE: ACCORDING TO THE R-CHOP SCHEME (RITUXIMAB, CYCLOPHOSPHAMIDE, DOXORUBICIN...
     Route: 042
     Dates: start: 20240115, end: 20240115
  6. MEDROL [Concomitant]
     Active Substance: METHYLPREDNISOLONE
     Indication: Product used for unknown indication
     Dosage: 2.5 TBL. X1 DAILY, 32 MG
     Route: 048
     Dates: start: 20240116, end: 20240118

REACTIONS (1)
  - Superficial vein thrombosis [Recovering/Resolving]

NARRATIVE: CASE EVENT DATE: 20240117
